FAERS Safety Report 6863715-1 (Version None)
Quarter: 2010Q3

REPORT INFORMATION
  Report Type: 
  Country: None (occurrence: None)
  Receive Date: 20100721
  Receipt Date: 20080306
  Transmission Date: 20110219
  Serious: No
  Sender: FDA-Public Use
  Company Number: US-PFIZER INC-2008022447

PATIENT
  Sex: Male
  Weight: 87.3 kg

DRUGS (4)
  1. CHANTIX [Suspect]
     Indication: SMOKING CESSATION THERAPY
     Dates: start: 20071001
  2. ARTHROTEC [Concomitant]
     Indication: ARTHROPATHY
  3. ZOLOFT [Concomitant]
     Indication: AFFECTIVE DISORDER
  4. MULTI-VITAMINS [Concomitant]

REACTIONS (2)
  - BLOOD GLUCOSE INCREASED [None]
  - SLEEP DISORDER [None]
